FAERS Safety Report 23937963 (Version 1)
Quarter: 2024Q2

REPORT INFORMATION
  Report Type: Spontaneous
  Country: US (occurrence: US)
  Receive Date: 20240604
  Receipt Date: 20240604
  Transmission Date: 20240715
  Serious: No
  Sender: FDA-Public Use
  Company Number: US-TORRENT-00013589

PATIENT
  Sex: Female

DRUGS (1)
  1. DAPSONE [Suspect]
     Active Substance: DAPSONE
     Indication: Product used for unknown indication
     Dosage: UNKNOWN
     Route: 065

REACTIONS (8)
  - Product physical consistency issue [Unknown]
  - Skin irritation [Unknown]
  - Skin disorder [Unknown]
  - Eye contusion [Unknown]
  - Product label confusion [Unknown]
  - Condition aggravated [Unknown]
  - Product substitution issue [Unknown]
  - Pain of skin [Unknown]
